FAERS Safety Report 10185274 (Version 1)
Quarter: 2014Q2

REPORT INFORMATION
  Report Type: Spontaneous
  Country: US (occurrence: None)
  Receive Date: 20140520
  Receipt Date: 20140520
  Transmission Date: 20141212
  Serious: Yes (Other)
  Sender: FDA-Public Use
  Company Number: None

PATIENT
  Age: 27 Year
  Sex: Female
  Weight: 49.9 kg

DRUGS (1)
  1. MINOCYCLINE [Suspect]
     Indication: INFLAMMATION
     Route: 048
     Dates: start: 20131218, end: 20131227

REACTIONS (10)
  - Asthenia [None]
  - Decreased appetite [None]
  - Chest pain [None]
  - Food intolerance [None]
  - Dyspepsia [None]
  - Feeling abnormal [None]
  - No therapeutic response [None]
  - Malaise [None]
  - Weight decreased [None]
  - Corrosive oropharyngeal injury [None]
